FAERS Safety Report 9417674 (Version 4)
Quarter: 2014Q2

REPORT INFORMATION
  Report Type: Spontaneous
  Country: FR (occurrence: FR)
  Receive Date: 20130724
  Receipt Date: 20140616
  Transmission Date: 20141212
  Serious: Yes (Hospitalization, Other)
  Sender: FDA-Public Use
  Company Number: FR-TEVA-420507ISR

PATIENT
  Sex: Male

DRUGS (19)
  1. ETOPOSIDE TEVA [Suspect]
     Dosage: CYCLE 3
     Route: 042
     Dates: start: 20120727, end: 20120727
  2. ETOPOSIDE TEVA [Suspect]
     Dosage: CYCLES 4 TO 8
     Route: 042
     Dates: start: 20121009, end: 20130201
  3. ETOPOSIDE TEVA [Suspect]
     Dosage: CYCLE 8
     Route: 042
     Dates: start: 20130201, end: 201302
  4. MABTHERA [Suspect]
     Dosage: CYCLES 1 AND 2
     Route: 042
     Dates: start: 20120614, end: 20120706
  5. MABTHERA [Suspect]
     Dosage: CYCLES 3 TO 8
     Route: 042
     Dates: start: 20120727, end: 20130201
  6. MABTHERA [Suspect]
     Dosage: CYCLE 8
     Route: 042
     Dates: start: 20130201, end: 201302
  7. ENDOXAN [Suspect]
     Dosage: CYCLE 1
     Route: 042
     Dates: start: 20120614, end: 20120614
  8. ENDOXAN [Suspect]
     Dosage: CYCLE 3
     Route: 042
     Dates: start: 20120627, end: 20120627
  9. ENDOXAN [Suspect]
     Dosage: CYCLES 4 TO 8
     Route: 042
     Dates: start: 20121009, end: 20130201
  10. ENDOXAN [Suspect]
     Dosage: CYCLE 8
     Route: 042
     Dates: start: 20130201, end: 201302
  11. PREDNISOLONE [Suspect]
     Dosage: 80 MILLIGRAM DAILY;
     Route: 048
     Dates: start: 20120727, end: 20130205
  12. KARDEGIC 75 MG [Concomitant]
     Dosage: 75 MILLIGRAM DAILY;
     Route: 048
  13. FOLINORAL 25 MG [Concomitant]
     Route: 048
  14. INEXIUM [Concomitant]
     Dosage: 40 MILLIGRAM DAILY;
     Route: 048
  15. BACTRIM FORTE [Concomitant]
     Route: 048
  16. XATRAL LP 10 MG [Concomitant]
     Dosage: 10 MILLIGRAM DAILY;
     Route: 048
  17. TIMOFEROL [Concomitant]
     Dosage: 1 DOSAGE FORMS DAILY;
     Route: 048
  18. METHYLPREDNISOLONE [Concomitant]
     Dosage: CYCLES 1 TO 8
     Dates: start: 20120614, end: 20130201
  19. METHYLPREDNISOLONE [Concomitant]
     Dosage: CYCLE 8
     Dates: start: 20130201, end: 201302

REACTIONS (2)
  - Visual acuity reduced [Not Recovered/Not Resolved]
  - Optic neuritis [Not Recovered/Not Resolved]
